FAERS Safety Report 6813534-7 (Version None)
Quarter: 2010Q3

REPORT INFORMATION
  Report Type: 
  Country: None (occurrence: None)
  Receive Date: 20100701
  Receipt Date: 20100622
  Transmission Date: 20110219
  Serious: Yes (Hospitalization, Other)
  Sender: FDA-Public Use
  Company Number: BR-TEVA-238601USA

PATIENT
  Age: 20 Year
  Sex: Male

DRUGS (4)
  1. PIMOZIDE TABLETS [Suspect]
     Indication: SCHIZOPHRENIA
  2. HALOPERIDOL [Concomitant]
     Indication: SCHIZOPHRENIA
  3. LORAZEPAM [Concomitant]
     Indication: SCHIZOPHRENIA
     Dosage: ONE ON ONE HOUR OF SLEEP
  4. CARBAMAZEPINE [Concomitant]
     Indication: SCHIZOPHRENIA

REACTIONS (2)
  - ATRIOVENTRICULAR BLOCK COMPLETE [None]
  - ELECTROCARDIOGRAM QT PROLONGED [None]
